FAERS Safety Report 23457792 (Version 1)
Quarter: 2024Q1

REPORT INFORMATION
  Report Type: Spontaneous
  Country: CN (occurrence: None)
  Receive Date: 20240130
  Receipt Date: 20240130
  Transmission Date: 20240410
  Serious: Yes (Death, Other)
  Sender: FDA-Public Use
  Company Number: 2024A021647

PATIENT
  Age: 50 Year
  Sex: Male

DRUGS (9)
  1. OSIMERTINIB [Suspect]
     Active Substance: OSIMERTINIB
     Indication: Lung adenocarcinoma
     Route: 048
     Dates: start: 20190310
  2. OSIMERTINIB [Suspect]
     Active Substance: OSIMERTINIB
     Indication: Lung adenocarcinoma
     Route: 048
     Dates: start: 20210410
  3. GEFITINIB [Suspect]
     Active Substance: GEFITINIB
     Indication: Lung adenocarcinoma
     Route: 048
     Dates: start: 20180225
  4. CISPLATIN\PEMETREXED [Concomitant]
     Active Substance: CISPLATIN\PEMETREXED
     Indication: Lung adenocarcinoma
     Dosage: 4 CYCLES
     Dates: start: 20200226
  5. BEVACIZUMAB [Concomitant]
     Active Substance: BEVACIZUMAB
     Indication: Lung adenocarcinoma
     Dosage: 4 CYCLES
     Dates: start: 20200226
  6. BEVACIZUMAB/PEMETREXED [Concomitant]
     Indication: Lung adenocarcinoma
  7. CATEQUENTINIB [Concomitant]
     Active Substance: CATEQUENTINIB
     Indication: Lung adenocarcinoma
     Dosage: FROM DAY 1 TO 14 OF A 21-DAY CYCLE
     Dates: start: 20201216
  8. DOCETAXEL [Concomitant]
     Active Substance: DOCETAXEL\DOCETAXEL ANHYDROUS
     Indication: Lung adenocarcinoma
     Dosage: 60 MG/M2, Q3W, UP TO 4 CYCLES
     Dates: start: 20201216
  9. ENTRECTINIB [Concomitant]
     Active Substance: ENTRECTINIB
     Indication: Lung adenocarcinoma

REACTIONS (5)
  - Malignant neoplasm progression [Fatal]
  - Acquired gene mutation [Fatal]
  - Drug resistance [Fatal]
  - Metastases to pancreas [Fatal]
  - Pleural effusion [Unknown]
